FAERS Safety Report 5325685-7 (Version None)
Quarter: 2007Q2

REPORT INFORMATION
  Report Type: 
  Country: None (occurrence: None)
  Receive Date: 20070509
  Receipt Date: 20070502
  Transmission Date: 20071010
  Serious: Yes (Other)
  Sender: FDA-Public Use
  Company Number: 2006-07-2108

PATIENT
  Sex: Female

DRUGS (3)
  1. ALBUTEROL [Suspect]
     Indication: DRUG USE FOR UNKNOWN INDICATION
     Dosage: QD;INH
     Route: 055
     Dates: start: 20000101
  2. ALBUTEROL [Suspect]
  3. ALBUTEROL [Suspect]

REACTIONS (10)
  - COUGH [None]
  - DRUG INEFFECTIVE [None]
  - EMOTIONAL DISTRESS [None]
  - HERPES ZOSTER [None]
  - INCREASED UPPER AIRWAY SECRETION [None]
  - PHARMACEUTICAL PRODUCT COMPLAINT [None]
  - REGURGITATION [None]
  - THROAT IRRITATION [None]
  - TOOTH LOSS [None]
  - UMBILICAL HERNIA REPAIR [None]
